FAERS Safety Report 13178568 (Version 1)
Quarter: 2017Q1

REPORT INFORMATION
  Report Type: Spontaneous
  Country: US (occurrence: US)
  Receive Date: 20170202
  Receipt Date: 20170202
  Transmission Date: 20170428
  Serious: Yes (Death, Hospitalization)
  Sender: FDA-Public Use
  Company Number: US-CIPLA LTD.-2017US01448

PATIENT

DRUGS (16)
  1. COREG [Concomitant]
     Active Substance: CARVEDILOL
     Indication: HYPERTENSION
     Dosage: 3.125 MG, BID
     Route: 065
  2. WARFARIN [Suspect]
     Active Substance: WARFARIN
     Dosage: 6 MG, INVAGEN MFG
     Route: 065
     Dates: start: 20161020
  3. BACTROBAN [Concomitant]
     Active Substance: MUPIROCIN\MUPIROCIN CALCIUM
     Indication: RASH
     Dosage: UNK, AT BED TIME
     Route: 065
  4. ERGOCALCIFEROL. [Concomitant]
     Active Substance: ERGOCALCIFEROL
     Dosage: 50000 IU, ONCE WEEKLY ON FRIDAYS
     Route: 065
  5. CALCITRIOL. [Concomitant]
     Active Substance: CALCITRIOL
     Indication: SUPPLEMENTATION THERAPY
     Dosage: 0.5 MCG, QD, AT BED TIME AS SUPPLEMENT
     Route: 065
  6. LANTUS [Concomitant]
     Active Substance: INSULIN GLARGINE
     Dosage: 22 UNITS, AT BED TIME
     Route: 058
  7. RENVELA [Concomitant]
     Active Substance: SEVELAMER CARBONATE
     Dosage: 1600 MG, PRN, UNSCHEDULED WITH SNACKS
     Route: 065
  8. WARFARIN [Suspect]
     Active Substance: WARFARIN
     Dosage: 4 MG , INVAGEN MFG
     Route: 065
     Dates: start: 20161021, end: 20161023
  9. FERROUS SULFATE. [Concomitant]
     Active Substance: FERROUS SULFATE
     Indication: SUPPLEMENTATION THERAPY
     Dosage: 325 UNK, BID
     Route: 065
  10. WARFARIN [Suspect]
     Active Substance: WARFARIN
     Indication: ANTICOAGULANT THERAPY
     Dosage: UNK, MANUFACTURER
     Route: 065
  11. WARFARIN [Suspect]
     Active Substance: WARFARIN
     Dosage: 2 MG PER DAY, DIFFERENT MANUFACTURER
     Route: 065
     Dates: start: 20161026
  12. NEPHRON-VITE MULTIVITAMIN [Concomitant]
     Dosage: UNK, QD
     Route: 065
  13. RENVELA [Concomitant]
     Active Substance: SEVELAMER CARBONATE
     Dosage: 800 MG, 4 TABLETS TID, WITH MEALS
     Route: 065
  14. CINACALCET [Concomitant]
     Active Substance: CINACALCET
     Dosage: 30 MG, QD, AT BED TIME DURING DIALYSIS
     Route: 065
  15. MIDODRINE [Concomitant]
     Active Substance: MIDODRINE
     Indication: HYPOTENSION
     Dosage: 5 MG, PRN, TID
     Route: 065
  16. NOVOLOG [Concomitant]
     Active Substance: INSULIN ASPART
     Indication: DIABETES MELLITUS
     Dosage: 5 UNITS, WITH MEALS
     Route: 058

REACTIONS (8)
  - Product substitution issue [Unknown]
  - International normalised ratio increased [Recovered/Resolved]
  - Arthralgia [Unknown]
  - Diabetic complication [Unknown]
  - Renal failure [Fatal]
  - Hypotension [Unknown]
  - Drug ineffective [Unknown]
  - Treatment noncompliance [Unknown]

NARRATIVE: CASE EVENT DATE: 20161024
